FAERS Safety Report 7542908-4 (Version None)
Quarter: 2011Q2

REPORT INFORMATION
  Report Type: 
  Country: None (occurrence: None)
  Receive Date: 20110613
  Receipt Date: 20110531
  Transmission Date: 20111010
  Serious: Yes (Other)
  Sender: FDA-Public Use
  Company Number: PHHY2011FR46036

PATIENT
  Age: 41 Year
  Sex: Female

DRUGS (3)
  1. RASILEZ HCT [Suspect]
     Dosage: 300 / 12.5 MG DAILY
     Dates: start: 20101001
  2. RASILEZ HCT [Suspect]
     Dosage: 150 / 12.5 MG, ONCE PER DAY
     Dates: start: 20100828
  3. LERCANIDIPINE [Concomitant]
     Indication: HYPERTENSION
     Dosage: 20 MG, UNK
     Dates: start: 20100828

REACTIONS (3)
  - DYSPHAGIA [None]
  - FACE OEDEMA [None]
  - ANGIOEDEMA [None]
